FAERS Safety Report 20687248 (Version 1)
Quarter: 2022Q2

REPORT INFORMATION
  Report Type: Report from Study
  Country: CA (occurrence: CA)
  Receive Date: 20220408
  Receipt Date: 20220408
  Transmission Date: 20220721
  Serious: Yes (Other)
  Sender: FDA-Public Use
  Company Number: CA-ABBVIE-21K-028-3949883-00

PATIENT
  Sex: Male

DRUGS (4)
  1. HUMIRA [Suspect]
     Active Substance: ADALIMUMAB
     Indication: Colitis ulcerative
     Route: 058
     Dates: start: 20210208, end: 2021
  2. HUMIRA [Suspect]
     Active Substance: ADALIMUMAB
     Route: 058
     Dates: start: 202105
  3. ASTRAZENECA COVID-19 VACCINE [Suspect]
     Active Substance: AZD-1222
     Indication: COVID-19 prophylaxis
     Dosage: FIRST DOSE
     Route: 030
     Dates: start: 20210401, end: 20210401
  4. ASTRAZENECA COVID-19 VACCINE [Suspect]
     Active Substance: AZD-1222
     Dosage: SECOND DOSE
     Route: 030
     Dates: start: 20210529, end: 20210529

REACTIONS (8)
  - Drug level decreased [Recovered/Resolved]
  - Haemorrhage [Recovered/Resolved]
  - Faecal volume decreased [Recovered/Resolved]
  - Therapeutic product effect delayed [Recovered/Resolved]
  - Haemorrhage [Not Recovered/Not Resolved]
  - Flatulence [Unknown]
  - Colitis ulcerative [Recovered/Resolved]
  - Colitis ulcerative [Unknown]

NARRATIVE: CASE EVENT DATE: 20210101
